FAERS Safety Report 6509921-7 (Version None)
Quarter: 2009Q4

REPORT INFORMATION
  Report Type: 
  Country: None (occurrence: None)
  Receive Date: 20091222
  Receipt Date: 20091211
  Transmission Date: 20100525
  Serious: Yes (Hospitalization)
  Sender: FDA-Public Use
  Company Number: PHHY2009GB55504

PATIENT
  Sex: Female

DRUGS (2)
  1. CLOZARIL [Suspect]
     Dosage: UNK
     Dates: start: 20070330
  2. CLOZARIL [Suspect]
     Dosage: 500 MG/DAY

REACTIONS (3)
  - DRUG DOSE OMISSION [None]
  - PLEURAL EFFUSION [None]
  - RESPIRATORY DISORDER [None]
